FAERS Safety Report 6723755-X (Version None)
Quarter: 2010Q2

REPORT INFORMATION
  Report Type: 
  Country: None (occurrence: None)
  Receive Date: 20100513
  Receipt Date: 20100305
  Transmission Date: 20101027
  Serious: Yes (Hospitalization)
  Sender: FDA-Public Use
  Company Number: BE-ROCHE-657394

PATIENT
  Sex: Male
  Weight: 75 kg

DRUGS (2)
  1. TAMIFLU [Suspect]
     Indication: INFLUENZA
     Dosage: FREQUENCY REPORTED AS:2/DAY
     Route: 048
     Dates: start: 20090914
  2. DAFALGAN [Concomitant]
     Route: 048
     Dates: start: 20090914

REACTIONS (2)
  - HYPOTENSION [None]
  - TUNNEL VISION [None]
